FAERS Safety Report 20710502 (Version 1)
Quarter: 2022Q2

REPORT INFORMATION
  Report Type: Spontaneous
  Country: US (occurrence: US)
  Receive Date: 20220414
  Receipt Date: 20220414
  Transmission Date: 20220721
  Serious: Yes (Other)
  Sender: FDA-Public Use
  Company Number: US-PFIZER INC-2021277083

PATIENT
  Age: 50 Year
  Sex: Female
  Weight: 154.19 kg

DRUGS (2)
  1. DILANTIN [Suspect]
     Active Substance: PHENYTOIN
     Indication: Epilepsy
     Dosage: UNK
     Dates: start: 1995
  2. DILANTIN [Suspect]
     Active Substance: PHENYTOIN
     Dosage: 300 MG, 2X/DAY
     Dates: start: 20070923, end: 20150921

REACTIONS (7)
  - Gingival recession [Unknown]
  - Dental caries [Unknown]
  - Dry mouth [Unknown]
  - Tooth loss [Unknown]
  - Hyperaesthesia teeth [Unknown]
  - Toothache [Unknown]
  - Bone loss [Unknown]
